FAERS Safety Report 5556881-1 (Version None)
Quarter: 2007Q4

REPORT INFORMATION
  Report Type: 
  Country: None (occurrence: None)
  Receive Date: 20071214
  Receipt Date: 20071203
  Transmission Date: 20080405
  Serious: Yes (Hospitalization, Other)
  Sender: FDA-Public Use
  Company Number: PHBS2007JP20330

PATIENT
  Age: 17 Year
  Sex: Female

DRUGS (3)
  1. CYCLOSPORINE [Suspect]
     Indication: CHRONIC GRAFT VERSUS HOST DISEASE
     Dosage: UNK, UNK
     Route: 065
     Dates: start: 20030401, end: 20030101
  2. RITUXIMAB [Concomitant]
     Indication: SCLERODERMA
     Dates: start: 20030101
  3. TACROLIMUS [Concomitant]
     Indication: CHRONIC GRAFT VERSUS HOST DISEASE
     Dates: start: 20030101

REACTIONS (16)
  - BEDRIDDEN [None]
  - CHRONIC GRAFT VERSUS HOST DISEASE [None]
  - COUGH [None]
  - DRY EYE [None]
  - DYSPNOEA [None]
  - FORCED EXPIRATORY VOLUME DECREASED [None]
  - HYPERCAPNIA [None]
  - LACRIMATION DECREASED [None]
  - LUNG TRANSPLANT [None]
  - MECHANICAL VENTILATION [None]
  - OBLITERATIVE BRONCHIOLITIS [None]
  - RASH [None]
  - RESPIRATORY FAILURE [None]
  - SCLERODERMA [None]
  - TRACHEOSTOMY [None]
  - VITAL CAPACITY DECREASED [None]
